FAERS Safety Report 16877665 (Version 1)
Quarter: 2019Q4

REPORT INFORMATION
  Report Type: Report from Study
  Country: US (occurrence: US)
  Receive Date: 20191002
  Receipt Date: 20191002
  Transmission Date: 20200122
  Serious: Yes (Death)
  Sender: FDA-Public Use
  Company Number: US-PUMA BIOTECHNOLOGY, LTD.-2019US008299

PATIENT

DRUGS (2)
  1. IMODIUM [Suspect]
     Active Substance: LOPERAMIDE HYDROCHLORIDE
     Indication: PROPHYLAXIS AGAINST DIARRHOEA
     Dosage: UNK
     Route: 048
     Dates: start: 20190806, end: 2019
  2. NERLYNX [Suspect]
     Active Substance: NERATINIB
     Indication: LUNG NEOPLASM MALIGNANT
     Dosage: 240 MG (6 TABLETS), DAILY
     Route: 048
     Dates: start: 20190804, end: 2019

REACTIONS (11)
  - Constipation [Not Recovered/Not Resolved]
  - Weight decreased [Unknown]
  - Off label use [Unknown]
  - Fatigue [Not Recovered/Not Resolved]
  - Insomnia [Unknown]
  - Gastrooesophageal reflux disease [Unknown]
  - Eating disorder [Unknown]
  - Lung neoplasm malignant [Unknown]
  - Death [Fatal]
  - Diarrhoea [Recovering/Resolving]
  - Vomiting [Unknown]

NARRATIVE: CASE EVENT DATE: 2019
